FAERS Safety Report 8269809-0 (Version None)
Quarter: 2012Q2

REPORT INFORMATION
  Report Type: 
  Country: None (occurrence: None)
  Receive Date: 20120410
  Receipt Date: 20120330
  Transmission Date: 20120825
  Serious: Yes (Life-Threatening, Hospitalization)
  Sender: FDA-Public Use
  Company Number: JP-CELGENEUS-087-50794-12040729

PATIENT
  Age: 58 Year
  Sex: Male

DRUGS (34)
  1. ITRACONAZOLE [Concomitant]
     Route: 065
  2. ARASENA A [Concomitant]
     Route: 065
  3. CONIEL [Concomitant]
     Route: 065
     Dates: start: 20110722
  4. HANP [Concomitant]
     Route: 065
     Dates: start: 20110727, end: 20110727
  5. DOPAMINE HCL [Concomitant]
     Route: 065
  6. FUNGUARD [Concomitant]
     Route: 065
     Dates: start: 20110804, end: 20110822
  7. KYTRIL [Concomitant]
     Route: 065
     Dates: start: 20110719, end: 20110722
  8. SLOW-K [Concomitant]
     Route: 065
     Dates: start: 20110706, end: 20110711
  9. KYTRIL [Concomitant]
     Route: 065
     Dates: start: 20110617, end: 20110621
  10. VALTREX [Concomitant]
     Route: 065
     Dates: start: 20110620, end: 20110626
  11. VANCOMYCIN [Concomitant]
     Route: 065
     Dates: start: 20110626, end: 20110725
  12. MEROPENEM [Concomitant]
     Route: 065
     Dates: start: 20110727, end: 20110815
  13. PREDNISOLONE [Concomitant]
     Route: 065
     Dates: start: 20110821, end: 20110824
  14. POTASSIUM CHLORIDE [Concomitant]
     Route: 065
     Dates: start: 20110621, end: 20110622
  15. VENOGLOBULIN [Concomitant]
     Route: 065
     Dates: start: 20110628, end: 20110630
  16. SOLU-CORTEF [Concomitant]
     Route: 065
     Dates: start: 20110802, end: 20110804
  17. PREDNISOLONE [Concomitant]
     Route: 065
     Dates: start: 20110817, end: 20110820
  18. ETOPOSIDE [Concomitant]
     Route: 065
     Dates: start: 20110804, end: 20110806
  19. LANSOPRAZOLE [Concomitant]
     Route: 065
  20. ACETAMINOPHEN [Concomitant]
     Route: 065
     Dates: start: 20110626, end: 20110711
  21. VIDAZA [Suspect]
     Dosage: 75 MILLIGRAM/SQ. METER
     Route: 041
     Dates: start: 20110613, end: 20110621
  22. VIDAZA [Suspect]
     Dosage: 50 MILLIGRAM
     Route: 065
     Dates: start: 20110719, end: 20110722
  23. LASIX [Concomitant]
     Route: 065
     Dates: start: 20110720
  24. MAXIPIME [Concomitant]
     Route: 065
     Dates: start: 20110618, end: 20110723
  25. ZOSYN [Concomitant]
     Route: 065
     Dates: start: 20110723, end: 20110723
  26. PREDNISOLONE [Concomitant]
     Route: 065
     Dates: start: 20110805, end: 20110808
  27. PREDNISOLONE [Concomitant]
     Route: 065
     Dates: start: 20110809, end: 20110812
  28. PREDNISOLONE [Concomitant]
     Route: 065
     Dates: start: 20110813, end: 20110816
  29. HICALIQ RF [Concomitant]
     Route: 041
     Dates: start: 20110726, end: 20110815
  30. PROMACTA [Concomitant]
     Route: 065
  31. SLOW-K [Concomitant]
     Route: 065
     Dates: start: 20110622, end: 20110626
  32. NEOMALLERMIN TR [Concomitant]
     Route: 065
     Dates: start: 20110623, end: 20110702
  33. MAGNESIUM OXIDE [Concomitant]
     Route: 065
     Dates: start: 20110705, end: 20110711
  34. FUROSEMIDE [Concomitant]
     Route: 065

REACTIONS (2)
  - OSTEOMYELITIS [None]
  - RENAL FAILURE ACUTE [None]
